FAERS Safety Report 6663109-8 (Version None)
Quarter: 2010Q2

REPORT INFORMATION
  Report Type: 
  Country: None (occurrence: None)
  Receive Date: 20100401
  Receipt Date: 20100322
  Transmission Date: 20101027
  Serious: Yes (Disabling, Other)
  Sender: FDA-Public Use
  Company Number: CA-WYE-G04979509

PATIENT
  Sex: Female

DRUGS (2)
  1. PRISTIQ [Suspect]
     Indication: DEPRESSION
     Dosage: 50 MG EVERY
     Route: 048
     Dates: start: 20091120, end: 20091121
  2. ZELDOX [Suspect]
     Indication: PSYCHOTIC DISORDER
     Route: 048
     Dates: start: 20091120, end: 20091121

REACTIONS (11)
  - ABASIA [None]
  - CONDITION AGGRAVATED [None]
  - DYSPNOEA [None]
  - FLUID RETENTION [None]
  - HEADACHE [None]
  - HYPERHIDROSIS [None]
  - NAUSEA [None]
  - NERVOUSNESS [None]
  - OEDEMA PERIPHERAL [None]
  - SWELLING FACE [None]
  - SWOLLEN TONGUE [None]
